FAERS Safety Report 12154341 (Version 1)
Quarter: 2016Q1

REPORT INFORMATION
  Report Type: Report from Study
  Country: US (occurrence: US)
  Receive Date: 20160307
  Receipt Date: 20160307
  Transmission Date: 20160526
  Serious: Yes (Hospitalization)
  Sender: FDA-Public Use
  Company Number: US-AMGEN-USASL2015136487

PATIENT
  Age: 60 Year
  Sex: Female

DRUGS (1)
  1. BLINCYTO [Suspect]
     Active Substance: BLINATUMOMAB
     Indication: PRODUCT USED FOR UNKNOWN INDICATION
     Dosage: UNK
     Route: 065

REACTIONS (6)
  - Hypercalcaemia [Unknown]
  - Nausea [Recovered/Resolved]
  - Blood creatinine increased [Unknown]
  - Hyperkalaemia [Unknown]
  - Asthenia [Recovered/Resolved]
  - Body temperature increased [Recovering/Resolving]

NARRATIVE: CASE EVENT DATE: 201512
